FAERS Safety Report 5712795-5 (Version None)
Quarter: 2008Q2

REPORT INFORMATION
  Report Type: 
  Country: None (occurrence: None)
  Receive Date: 20080421
  Receipt Date: 20080421
  Transmission Date: 20081010
  Serious: Yes (Other)
  Sender: FDA-Public Use
  Company Number: None

PATIENT
  Age: 38 Year
  Sex: Female
  Weight: 49.8957 kg

DRUGS (1)
  1. SERTRALINE [Suspect]
     Indication: DEPRESSION
     Dosage: 150 MG DAILY PO
     Route: 048
     Dates: start: 20080328, end: 20080418

REACTIONS (6)
  - CRYING [None]
  - HEADACHE [None]
  - INSOMNIA [None]
  - IRRITABILITY [None]
  - SUICIDAL IDEATION [None]
  - THERAPEUTIC RESPONSE UNEXPECTED WITH DRUG SUBSTITUTION [None]
